FAERS Safety Report 22151479 (Version 1)
Quarter: 2023Q1

REPORT INFORMATION
  Report Type: Other
  Country: None (occurrence: AR)
  Receive Date: 20230329
  Receipt Date: 20230329
  Transmission Date: 20230417
  Serious: Yes (Hospitalization, Other)
  Sender: FDA-Public Use
  Company Number: AR-PAI Holdings, LLC dba Pharmaceutical Associates, Inc.-2139657

PATIENT
  Age: 48 Year
  Sex: Female

DRUGS (4)
  1. MORPHINE SULFATE [Suspect]
     Active Substance: MORPHINE SULFATE
     Indication: Pain
     Route: 065
  2. DEVICE [Suspect]
     Active Substance: DEVICE
  3. SUNITINIB [Concomitant]
     Active Substance: SUNITINIB
  4. PREGABALIN [Concomitant]
     Active Substance: PREGABALIN

REACTIONS (1)
  - Cholestasis [Recovered/Resolved]
